FAERS Safety Report 11008751 (Version 1)
Quarter: 2015Q2

REPORT INFORMATION
  Report Type: Other
  Country: DK (occurrence: DK)
  Receive Date: 20150410
  Receipt Date: 20150410
  Transmission Date: 20150821
  Serious: Yes (Other)
  Sender: FDA-Public Use
  Company Number: DK-AUROBINDO-AUR-APL-2014-00640

PATIENT
  Age: 49 Year
  Sex: Male
  Weight: 85 kg

DRUGS (3)
  1. LAMOTRIGIN ^AUROBINDO^, TABLETTER 100 MG [Suspect]
     Active Substance: LAMOTRIGINE
     Indication: EPILEPSY
     Dosage: 100 MG,UNK,
     Route: 065
     Dates: start: 2005
  2. LAMOTRIGIN ^AUROBINDO^, TABLETTER 100 MG [Suspect]
     Active Substance: LAMOTRIGINE
     Dosage: UNK UNK,UNK,,150+0+100 MG DAILY
     Route: 065
     Dates: start: 20091214, end: 2010
  3. PLENDIL [Concomitant]
     Active Substance: FELODIPINE
     Indication: HYPERTENSION
     Dosage: 10 MG, ONCE A DAY
     Route: 048
     Dates: start: 1994

REACTIONS (6)
  - Lethargy [Recovered/Resolved]
  - Diarrhoea [Recovered/Resolved]
  - Chronic obstructive pulmonary disease [Recovered/Resolved]
  - Somnolence [Recovered/Resolved]
  - Dyspnoea [Not Recovered/Not Resolved]
  - Product substitution issue [Unknown]

NARRATIVE: CASE EVENT DATE: 20050101
